FAERS Safety Report 9294767 (Version 1)
Quarter: 2013Q1

REPORT INFORMATION
  Report Type: Spontaneous
  Country: US (occurrence: None)
  Receive Date: 20121227
  Receipt Date: 20121227
  Transmission Date: 20140127
  Serious: Yes (Hospitalization)
  Sender: FDA-Public Use
  Company Number: PHEH2012US003363

PATIENT
  Age: 43 Year
  Sex: Male

DRUGS (2)
  1. MYFORTIC [Suspect]
     Indication: RENAL TRANSPLANT
     Route: 048
  2. PROGRAF (TACROLIMUS) [Concomitant]

REACTIONS (2)
  - Sepsis [None]
  - Urinary tract infection [None]
